FAERS Safety Report 4980356-1 (Version None)
Quarter: 2006Q2

REPORT INFORMATION
  Report Type: 
  Country: None (occurrence: None)
  Receive Date: 20060420
  Receipt Date: 20060420
  Transmission Date: 20061013
  Serious: Yes (Hospitalization)
  Sender: FDA-Public Use
  Company Number: None

PATIENT
  Age: 46 Year
  Sex: Male

DRUGS (11)
  1. LEXIVA [Suspect]
     Indication: HIV INFECTION
     Dosage: 1400 MG  QD  PO
     Route: 048
     Dates: start: 20051103
  2. EPZICOM [Suspect]
     Indication: HIV INFECTION
     Dosage: 600/300MG  QD  PO
     Route: 048
     Dates: start: 20051103
  3. NORVIR [Suspect]
     Indication: HIV INFECTION
     Dosage: 200 MG  QD  PO
     Route: 048
     Dates: start: 20051103
  4. FLUCONAZOLE [Concomitant]
  5. ZITHROMAX [Concomitant]
  6. BACTRIM [Concomitant]
  7. HYDROCHLOROTHIAZIDE [Concomitant]
  8. ASPIRIN [Concomitant]
  9. LOPRESSOR [Concomitant]
  10. ZANTAC [Concomitant]
  11. COMPAZINE [Concomitant]

REACTIONS (7)
  - DEHYDRATION [None]
  - DIABETES MELLITUS NON-INSULIN-DEPENDENT [None]
  - DIABETIC KETOACIDOSIS [None]
  - DIZZINESS [None]
  - NAUSEA [None]
  - VOMITING [None]
  - WEIGHT DECREASED [None]
